FAERS Safety Report 7363051-3 (Version None)
Quarter: 2011Q1

REPORT INFORMATION
  Report Type: 
  Country: None (occurrence: None)
  Receive Date: 20110321
  Receipt Date: 20110311
  Transmission Date: 20110831
  Serious: Yes (Other)
  Sender: FDA-Public Use
  Company Number: US-PFIZER INC-2006031796

PATIENT
  Sex: Male

DRUGS (6)
  1. FLEXERIL [Concomitant]
     Route: 048
     Dates: start: 20030801
  2. CELEXA [Concomitant]
     Route: 048
  3. EFFEXOR XR [Concomitant]
     Dosage: UNK
     Route: 048
     Dates: start: 20030803, end: 20030805
  4. NEURONTIN [Suspect]
     Indication: MOOD SWINGS
     Dosage: UNK
     Route: 048
     Dates: start: 20030803, end: 20030924
  5. NICOTROL [Concomitant]
     Route: 055
     Dates: start: 20030801
  6. ATIVAN [Concomitant]
     Route: 048
     Dates: start: 20030501

REACTIONS (2)
  - SUICIDAL IDEATION [None]
  - DRUG INEFFECTIVE [None]
